FAERS Safety Report 7673512-5 (Version None)
Quarter: 2011Q3

REPORT INFORMATION
  Report Type: 
  Country: None (occurrence: None)
  Receive Date: 20110810
  Receipt Date: 20110804
  Transmission Date: 20111222
  Serious: Yes (Other)
  Sender: FDA-Public Use
  Company Number: US-PFIZER INC-2011179364

PATIENT
  Sex: Female
  Weight: 88.435 kg

DRUGS (2)
  1. NORVASC [Concomitant]
     Indication: HYPERTENSION
     Dosage: UNK
  2. PREMARIN [Suspect]
     Indication: ATROPHIC VULVOVAGINITIS
     Dosage: 1.25 MG, ALTERNATE DAY
     Route: 067
     Dates: start: 20110601

REACTIONS (4)
  - VULVOVAGINAL BURNING SENSATION [None]
  - GLYCOSYLATED HAEMOGLOBIN INCREASED [None]
  - VULVOVAGINAL PRURITUS [None]
  - BLOOD CHOLESTEROL INCREASED [None]
